FAERS Safety Report 4947710-5 (Version None)
Quarter: 2006Q1

REPORT INFORMATION
  Report Type: 
  Country: None (occurrence: None)
  Receive Date: 20060320
  Receipt Date: 20060308
  Transmission Date: 20060701
  Serious: Yes (Hospitalization)
  Sender: FDA-Public Use
  Company Number: PHBS2006JP03770

PATIENT
  Age: 20 Year
  Sex: Male

DRUGS (3)
  1. ACEMETACIN [Concomitant]
     Indication: PYREXIA
  2. CEFTRIAXONE [Concomitant]
  3. DICLOFENAC EPOLAMINE PATCH [Suspect]
     Indication: PAIN IN EXTREMITY

REACTIONS (7)
  - ASTHENIA [None]
  - DELIRIUM [None]
  - DISORIENTATION [None]
  - ERYTHEMA [None]
  - HYPOAESTHESIA [None]
  - RASH [None]
  - SYSTEMIC LUPUS ERYTHEMATOSUS [None]
